FAERS Safety Report 16938714 (Version 1)
Quarter: 2019Q4

REPORT INFORMATION
  Report Type: Spontaneous
  Country: US (occurrence: US)
  Receive Date: 20191020
  Receipt Date: 20191020
  Transmission Date: 20200122
  Serious: Yes (Hospitalization, Other)
  Sender: FDA-Public Use
  Company Number: NVSC2019US000979

PATIENT
  Age: 40 Year
  Sex: Female

DRUGS (1)
  1. ACETAMINOPHEN (PARACETAMOL) [Suspect]
     Active Substance: ACETAMINOPHEN
     Indication: TOOTH ABSCESS
     Route: 065

REACTIONS (6)
  - Refeeding syndrome [Recovering/Resolving]
  - Toxicity to various agents [Recovering/Resolving]
  - Metabolic acidosis [Recovering/Resolving]
  - Hypomagnesaemia [Recovering/Resolving]
  - Hypokalaemia [Recovering/Resolving]
  - Hypophosphataemia [Recovering/Resolving]
